FAERS Safety Report 4350903-1 (Version None)
Quarter: 2004Q2

REPORT INFORMATION
  Report Type: 
  Country: None (occurrence: None)
  Receive Date: 20040427
  Receipt Date: 20040413
  Transmission Date: 20050107
  Serious: No
  Sender: FDA-Public Use
  Company Number: 2004GB00872

PATIENT
  Age: 54 Year
  Sex: Female

DRUGS (4)
  1. CRESTOR [Suspect]
     Indication: HYPERCHOLESTEROLAEMIA
     Dosage: 40 MG DAILY PO
     Route: 048
     Dates: start: 20040102, end: 20040402
  2. ASPIRIN [Concomitant]
  3. FUROSEMIDE [Concomitant]
  4. Q10 [Concomitant]

REACTIONS (3)
  - GINGIVAL BLEEDING [None]
  - PETECHIAE [None]
  - THROMBOCYTOPENIA [None]
